FAERS Safety Report 9471845 (Version 2)
Quarter: 2013Q4

REPORT INFORMATION
  Report Type: Spontaneous
  Country: JP (occurrence: JP)
  Receive Date: 20130822
  Receipt Date: 20131219
  Transmission Date: 20140711
  Serious: Yes (Other)
  Sender: FDA-Public Use
  Company Number: JP-ROCHE-1264808

PATIENT
  Age: 69 Year
  Sex: Male

DRUGS (3)
  1. XELODA [Suspect]
     Indication: COLON CANCER RECURRENT
     Dosage: EIGHT COURSE END
     Route: 048
     Dates: start: 20130222, end: 20130819
  2. AVASTIN [Suspect]
     Indication: COLON CANCER RECURRENT
     Dosage: EIGHT COURSE END
     Route: 041
     Dates: start: 20130222, end: 20130819
  3. ELPLAT [Concomitant]
     Indication: COLON CANCER RECURRENT
     Dosage: UNCERTAIN DOSAGE AND EIGHT COURSE END
     Route: 041
     Dates: start: 201302

REACTIONS (1)
  - Interstitial lung disease [Recovered/Resolved]
